FAERS Safety Report 6566657-4 (Version None)
Quarter: 2010Q1

REPORT INFORMATION
  Report Type: 
  Country: None (occurrence: None)
  Receive Date: 20100202
  Receipt Date: 20100122
  Transmission Date: 20100710
  Serious: Yes (Other)
  Sender: FDA-Public Use
  Company Number: BR-ROCHE-680929

PATIENT
  Age: 37 Year
  Sex: Male

DRUGS (1)
  1. ROACUTAN [Suspect]
     Indication: DRUG USE FOR UNKNOWN INDICATION
     Dosage: TWO TREATMENTS
     Route: 065

REACTIONS (3)
  - ACNE [None]
  - BRAIN NEOPLASM [None]
  - NERVE COMPRESSION [None]
